FAERS Safety Report 7979258-8 (Version None)
Quarter: 2011Q4

REPORT INFORMATION
  Report Type: 
  Country: None (occurrence: None)
  Receive Date: 20111214
  Receipt Date: 20111214
  Transmission Date: 20120403
  Serious: Yes (Other)
  Sender: FDA-Public Use
  Company Number: None

PATIENT
  Sex: Female
  Weight: 61.234 kg

DRUGS (2)
  1. PREDNISONE TAB [Concomitant]
     Indication: BURSITIS
     Dosage: 360 MG TOTAL DOSAGE - 9 DAYS
     Route: 048
  2. PREDNISONE [Suspect]
     Indication: FUNGAL INFECTION
     Dosage: 650 MG TOTAL DOSAGE - 20 DAYS
     Route: 048

REACTIONS (2)
  - OSTEONECROSIS [None]
  - BURSITIS [None]
